FAERS Safety Report 7512398-6 (Version None)
Quarter: 2011Q2

REPORT INFORMATION
  Report Type: 
  Country: None (occurrence: None)
  Receive Date: 20110531
  Receipt Date: 20110524
  Transmission Date: 20111010
  Serious: Yes (Death, Other)
  Sender: FDA-Public Use
  Company Number: GB-ROCHE-754668

PATIENT
  Sex: Female
  Weight: 90 kg

DRUGS (6)
  1. TAXOTERE [Concomitant]
     Dosage: RECEIVED 3 CYCLES
     Dates: start: 20100806, end: 20100915
  2. FLUOROURACIL [Concomitant]
     Dosage: AS PART OF FEC THERAPY - RECEIVED 3 CYCLES
     Dates: start: 20100601, end: 20100715
  3. HERCEPTIN [Suspect]
     Indication: BREAST CANCER
     Route: 042
     Dates: start: 20100806
  4. CYCLOPHOSPHAMIDE [Concomitant]
     Dosage: AS PART OF FEC THERAPY - RECEIVED 3 CYCLES
     Dates: start: 20100701, end: 20100715
  5. EPIRUBICIN [Concomitant]
     Dosage: AS PART OF FEC THERAPY - RECEIVED 3 CYCLES
     Dates: start: 20100601, end: 20100715
  6. PERINDOPRIL ERBUMINE [Concomitant]
     Indication: CARDIOVASCULAR EVENT PROPHYLAXIS
     Route: 048
     Dates: start: 20100714

REACTIONS (2)
  - CARDIAC FAILURE [None]
  - EJECTION FRACTION DECREASED [None]
